FAERS Safety Report 6649743-X (Version None)
Quarter: 2010Q1

REPORT INFORMATION
  Report Type: 
  Country: None (occurrence: None)
  Receive Date: 20100324
  Receipt Date: 20100324
  Transmission Date: 20100710
  Serious: No
  Sender: FDA-Public Use
  Company Number: None

PATIENT
  Age: 70 Year
  Sex: Female
  Weight: 112.18 kg

DRUGS (1)
  1. MORPHINE [Suspect]
     Dosage: 15 MG TID PO
     Route: 048
     Dates: start: 20091021, end: 20091022

REACTIONS (2)
  - HYPOVENTILATION [None]
  - LETHARGY [None]
